FAERS Safety Report 18038860 (Version 1)
Quarter: 2020Q3

REPORT INFORMATION
  Report Type: Spontaneous
  Country: US (occurrence: US)
  Receive Date: 20200717
  Receipt Date: 20200717
  Transmission Date: 20201103
  Serious: Yes (Hospitalization, Other)
  Sender: FDA-Public Use
  Company Number: US-BRISTOL-MYERS SQUIBB COMPANY-BMS-2020-055631

PATIENT
  Sex: Female
  Weight: 61 kg

DRUGS (2)
  1. LISINOPRIL. [Suspect]
     Active Substance: LISINOPRIL
     Indication: PRODUCT USED FOR UNKNOWN INDICATION
     Route: 065
  2. ELIQUIS [Suspect]
     Active Substance: APIXABAN
     Indication: CARDIAC FAILURE
     Dosage: 5 MILLIGRAM, BID
     Route: 048
     Dates: start: 2013

REACTIONS (10)
  - Atypical pneumonia [Unknown]
  - Infection [Unknown]
  - Cough [Unknown]
  - Pulmonary oedema [Unknown]
  - Cardiac sarcoidosis [Unknown]
  - Intentional product use issue [Unknown]
  - Weight fluctuation [Unknown]
  - Lung disorder [Unknown]
  - Increased bronchial secretion [Unknown]
  - Cardiac failure [Unknown]
